FAERS Safety Report 18522107 (Version 1)
Quarter: 2020Q4

REPORT INFORMATION
  Report Type: Spontaneous
  Country: US (occurrence: US)
  Receive Date: 20201119
  Receipt Date: 20201119
  Transmission Date: 20210114
  Serious: Yes (Other)
  Sender: FDA-Public Use
  Company Number: None

PATIENT
  Age: 45 Year
  Sex: Female
  Weight: 83.25 kg

DRUGS (1)
  1. SPRAVATO [Suspect]
     Active Substance: ESKETAMINE
     Indication: MAJOR DEPRESSION
     Dosage: ?          OTHER FREQUENCY:EVERY TWO WEEKS;?
     Route: 045
     Dates: start: 20201117, end: 20201117

REACTIONS (7)
  - Dry mouth [None]
  - Restlessness [None]
  - Hyperventilation [None]
  - Agitation [None]
  - Hyperhidrosis [None]
  - Muscle spasms [None]
  - Feeling abnormal [None]

NARRATIVE: CASE EVENT DATE: 20201117
